FAERS Safety Report 6133240-4 (Version None)
Quarter: 2009Q1

REPORT INFORMATION
  Report Type: 
  Country: None (occurrence: None)
  Receive Date: 20090326
  Receipt Date: 20090323
  Transmission Date: 20090719
  Serious: Yes (Death)
  Sender: FDA-Public Use
  Company Number: GR-ASTRAZENECA-2009SE01256

PATIENT
  Sex: Male

DRUGS (2)
  1. CASODEX [Suspect]
     Indication: PROSTATE CANCER
     Route: 048
  2. ARVECAP [Concomitant]

REACTIONS (2)
  - DEATH [None]
  - HEPATIC FAILURE [None]
